FAERS Safety Report 5624860-1 (Version None)
Quarter: 2008Q1

REPORT INFORMATION
  Report Type: 
  Country: None (occurrence: None)
  Receive Date: 20080213
  Receipt Date: 20080207
  Transmission Date: 20080703
  Serious: Yes (Hospitalization)
  Sender: FDA-Public Use
  Company Number: US-JNJFOC-20080102836

PATIENT
  Sex: Male

DRUGS (6)
  1. INVEGA [Suspect]
     Indication: BIPOLAR I DISORDER
     Route: 048
  2. INVEGA [Suspect]
     Indication: SCHIZOPHRENIA
     Route: 048
  3. PAXIL [Concomitant]
     Indication: BIPOLAR I DISORDER
  4. LITHIUM CARBONATE [Concomitant]
     Indication: BIPOLAR I DISORDER
  5. XANAX [Concomitant]
     Indication: BIPOLAR I DISORDER
  6. MORPHINE [Concomitant]

REACTIONS (4)
  - CONFUSIONAL STATE [None]
  - HYPERHIDROSIS [None]
  - PYREXIA [None]
  - TREMOR [None]
